FAERS Safety Report 6793906-X (Version None)
Quarter: 2010Q2

REPORT INFORMATION
  Report Type: 
  Country: None (occurrence: None)
  Receive Date: 20100624
  Receipt Date: 20090317
  Transmission Date: 20101027
  Serious: Yes (Other)
  Sender: FDA-Public Use
  Company Number: US-PFIZER INC-2009185235

PATIENT
  Sex: Female
  Weight: 60 kg

DRUGS (7)
  1. PROVERA [Suspect]
     Indication: HORMONE REPLACEMENT THERAPY
     Dosage: UNK
     Route: 065
     Dates: start: 19770101, end: 19980101
  2. PROVERA [Suspect]
     Indication: MENOPAUSAL SYMPTOMS
  3. PREMPRO [Suspect]
     Indication: HORMONE REPLACEMENT THERAPY
     Dosage: 0.625/2.5MG
     Route: 065
     Dates: start: 19990101, end: 20040101
  4. PREMPRO [Suspect]
     Indication: MENOPAUSAL SYMPTOMS
  5. FOSAMAX [Concomitant]
     Indication: PROPHYLAXIS
     Dosage: UNK
     Dates: start: 20030101
  6. POTASSIUM [Concomitant]
     Dosage: UNK
     Dates: start: 20020101
  7. VITAMINS [Concomitant]
     Dosage: UNK

REACTIONS (1)
  - BREAST CANCER [None]
